FAERS Safety Report 25371682 (Version 1)
Quarter: 2025Q2

REPORT INFORMATION
  Report Type: Spontaneous
  Country: US (occurrence: US)
  Receive Date: 20250529
  Receipt Date: 20250529
  Transmission Date: 20250717
  Serious: No
  Sender: Kenvue
  Company Number: US-KENVUE-20250302629

PATIENT
  Age: 80 Year
  Sex: Female

DRUGS (4)
  1. TYLENOL [Suspect]
     Active Substance: ACETAMINOPHEN
     Indication: Arthralgia
     Dosage: 1 DOSAGE FORM, THRICE A DAY
     Route: 065
     Dates: start: 20250205
  2. TYLENOL [Suspect]
     Active Substance: ACETAMINOPHEN
     Indication: Back pain
  3. MOTRIN [Suspect]
     Active Substance: IBUPROFEN
     Indication: Arthralgia
     Route: 065
  4. MOTRIN [Suspect]
     Active Substance: IBUPROFEN
     Indication: Back pain

REACTIONS (2)
  - Incorrect dose administered [Unknown]
  - Peripheral swelling [Not Recovered/Not Resolved]

NARRATIVE: CASE EVENT DATE: 20250205
